FAERS Safety Report 5689206-1 (Version None)
Quarter: 2008Q1

REPORT INFORMATION
  Report Type: 
  Country: None (occurrence: None)
  Receive Date: 20080331
  Receipt Date: 20080318
  Transmission Date: 20080703
  Serious: Yes (Hospitalization, Other)
  Sender: FDA-Public Use
  Company Number: FR-ROCHE-548126

PATIENT
  Age: 43 Year
  Sex: Female
  Weight: 55 kg

DRUGS (5)
  1. PEGASYS [Suspect]
     Indication: HEPATITIS C
     Dosage: FORM REPORTED AS INJECTABLE AMPULE
     Route: 058
     Dates: start: 20060916, end: 20071008
  2. NEORECORMON [Suspect]
     Indication: DRUG USE FOR UNKNOWN INDICATION
     Route: 065
  3. KALETRA [Concomitant]
     Route: 048
     Dates: start: 20060627
  4. INVIRASE [Concomitant]
     Route: 048
     Dates: start: 20060627
  5. REBETOL [Concomitant]
     Route: 048
     Dates: start: 20060916, end: 20071008

REACTIONS (3)
  - HEADACHE [None]
  - VISUAL DISTURBANCE [None]
  - VISUAL FIELD DEFECT [None]
